FAERS Safety Report 16440946 (Version 2)
Quarter: 2019Q2

REPORT INFORMATION
  Report Type: Report from Study
  Country: KE (occurrence: KE)
  Receive Date: 20190617
  Receipt Date: 20190620
  Transmission Date: 20190711
  Serious: Yes (Hospitalization, Other)
  Sender: FDA-Public Use
  Company Number: KE-GILEAD-2019-0409040

PATIENT
  Age: 22 Year
  Sex: Female
  Weight: 48.5 kg

DRUGS (5)
  1. NOSIC [Concomitant]
     Indication: NAUSEA
     Dosage: UNK
     Dates: start: 20190411, end: 20190418
  2. IRON FOLIC [Concomitant]
     Indication: PREGNANCY
     Dosage: UNK
     Dates: start: 20190429
  3. AUGMENTIN [Concomitant]
     Active Substance: AMOXICILLIN\CLAVULANATE POTASSIUM
     Indication: URINARY TRACT INFECTION
     Dosage: UNK
     Dates: start: 20190429
  4. EMTRICITABINE/TENOFOVIR DISOPROXIL FUMARATE [Suspect]
     Active Substance: EMTRICITABINE\TENOFOVIR DISOPROXIL FUMARATE
     Indication: PROPHYLAXIS AGAINST HIV INFECTION
     Dosage: UNK
     Route: 065
     Dates: start: 20171116, end: 20180215
  5. CLOTRINE [Concomitant]
     Indication: TINEA INFECTION
     Dosage: UNK
     Dates: start: 20190411, end: 20190425

REACTIONS (2)
  - Maternal exposure before pregnancy [Recovered/Resolved]
  - Abortion complete [Recovered/Resolved]

NARRATIVE: CASE EVENT DATE: 20190210
